FAERS Safety Report 24968851 (Version 1)
Quarter: 2025Q1

REPORT INFORMATION
  Report Type: Report from Study
  Country: US (occurrence: US)
  Receive Date: 20250214
  Receipt Date: 20250214
  Transmission Date: 20250408
  Serious: No
  Sender: AMNEAL
  Company Number: US-AMNEAL PHARMACEUTICALS-2024-AMRX-02853

PATIENT
  Age: 76 Year
  Sex: Female

DRUGS (1)
  1. CARBIDOPA\LEVODOPA [Suspect]
     Active Substance: CARBIDOPA\LEVODOPA
     Indication: Product used for unknown indication
     Dosage: 61.25-245MG ; TAKE 3 CAPSULES BY MOUTH 3 TIMES A DAY
     Route: 048
     Dates: end: 202409

REACTIONS (12)
  - Tremor [Unknown]
  - Bradykinesia [Unknown]
  - Dry eye [Unknown]
  - Vision blurred [Unknown]
  - Pelvic pain [Unknown]
  - Abdominal distension [Unknown]
  - Hyperhidrosis [Unknown]
  - Sleep disorder [Unknown]
  - Therapeutic product effect delayed [Unknown]
  - Adverse event [Unknown]
  - Drug ineffective [Unknown]
  - Dyskinesia [Unknown]

NARRATIVE: CASE EVENT DATE: 20240901
